FAERS Safety Report 13555224 (Version 2)
Quarter: 2017Q2

REPORT INFORMATION
  Report Type: Report from Study
  Country: JP (occurrence: JP)
  Receive Date: 20170517
  Receipt Date: 20170623
  Transmission Date: 20170830
  Serious: Yes (Hospitalization)
  Sender: FDA-Public Use
  Company Number: JP-PFIZER INC-2017209487

PATIENT
  Age: 47 Year
  Sex: Female
  Weight: 49 kg

DRUGS (17)
  1. PREDNISOLONE. [Concomitant]
     Active Substance: PREDNISOLONE
     Dosage: 4 MG, DAILY
     Route: 048
     Dates: start: 20170210
  2. SUMILU [Concomitant]
     Active Substance: FELBINAC
  3. LOXONIN [Concomitant]
     Active Substance: LOXOPROFEN SODIUM
     Route: 048
  4. AZULFIDINE [Concomitant]
     Active Substance: SULFASALAZINE
     Dosage: UNK
  5. NEXIUM [Concomitant]
     Active Substance: ESOMEPRAZOLE MAGNESIUM
     Route: 048
  6. TRACLEER [Concomitant]
     Active Substance: BOSENTAN
  7. MIYA-BM [Concomitant]
     Active Substance: CLOSTRIDIUM BUTYRICUM SPORES STRAIN M-55
     Route: 048
  8. HYALEIN [Concomitant]
     Active Substance: HYALURONATE SODIUM
     Route: 047
  9. EPOPROSTENOL. [Concomitant]
     Active Substance: EPOPROSTENOL
  10. TEPRENONE [Concomitant]
     Active Substance: TEPRENONE
     Route: 048
  11. ADCIRCA [Concomitant]
     Active Substance: TADALAFIL
     Route: 048
  12. PREDNISOLONE. [Concomitant]
     Active Substance: PREDNISOLONE
     Dosage: 5 MG, DAILY
     Route: 048
     Dates: end: 20170209
  13. ALFAROL [Concomitant]
     Active Substance: ALFACALCIDOL
     Route: 048
  14. XELJANZ [Suspect]
     Active Substance: TOFACITINIB CITRATE
     Indication: RHEUMATOID ARTHRITIS
     Dosage: 5 MG, 1X/DAY
     Route: 048
     Dates: start: 20160826, end: 20160901
  15. XELJANZ [Suspect]
     Active Substance: TOFACITINIB CITRATE
     Dosage: 5 MG, 2X/DAY
     Route: 048
     Dates: start: 20160902
  16. WARFARIN [Suspect]
     Active Substance: WARFARIN
     Route: 048
  17. MOHRUS [Concomitant]
     Active Substance: KETOPROFEN

REACTIONS (2)
  - Haemoptysis [Recovered/Resolved]
  - Respiratory tract haemorrhage [Recovered/Resolved]

NARRATIVE: CASE EVENT DATE: 20170107
